FAERS Safety Report 8076577-4 (Version None)
Quarter: 2011Q4

REPORT INFORMATION
  Report Type: 
  Country: None (occurrence: None)
  Receive Date: 20111221
  Receipt Date: 20110328
  Transmission Date: 20120403
  Serious: Yes (Other)
  Sender: FDA-Public Use
  Company Number: PHHY2010US40269

PATIENT
  Age: 89 Year
  Sex: Female
  Weight: 64.9 kg

DRUGS (7)
  1. DEFERASIROX [Suspect]
     Indication: LYMPHATIC SYSTEM NEOPLASM
     Dosage: 1000 MG, DAILY, ORAL 15 MG/KG, ORAL
     Route: 048
     Dates: end: 20100501
  2. DEFERASIROX [Suspect]
     Indication: HAEMATOPOIETIC NEOPLASM
     Dosage: 1000 MG, DAILY, ORAL 15 MG/KG, ORAL
     Route: 048
     Dates: end: 20100501
  3. DEFERASIROX [Suspect]
     Indication: CHELATION THERAPY
     Dosage: 1000 MG, DAILY, ORAL 15 MG/KG, ORAL
     Route: 048
     Dates: end: 20100501
  4. DEFERASIROX [Suspect]
     Indication: LYMPHATIC SYSTEM NEOPLASM
     Dosage: 1000 MG, DAILY, ORAL 15 MG/KG, ORAL
     Route: 048
     Dates: start: 20100112
  5. DEFERASIROX [Suspect]
     Indication: HAEMATOPOIETIC NEOPLASM
     Dosage: 1000 MG, DAILY, ORAL 15 MG/KG, ORAL
     Route: 048
     Dates: start: 20100112
  6. DEFERASIROX [Suspect]
     Indication: CHELATION THERAPY
     Dosage: 1000 MG, DAILY, ORAL 15 MG/KG, ORAL
     Route: 048
     Dates: start: 20100112
  7. LASIX [Concomitant]

REACTIONS (1)
  - RENAL DISORDER [None]
